FAERS Safety Report 5910442-0 (Version None)
Quarter: 2008Q4

REPORT INFORMATION
  Report Type: 
  Country: None (occurrence: None)
  Receive Date: 20081007
  Receipt Date: 20080909
  Transmission Date: 20090506
  Serious: Yes (Hospitalization)
  Sender: FDA-Public Use
  Company Number: HQWYE440907NOV05

PATIENT
  Sex: Male
  Weight: 71 kg

DRUGS (1)
  1. TEMSIROLIMUS [Suspect]
     Indication: MANTLE CELL LYMPHOMA
     Dosage: NOT PROVIDED
     Route: 042
     Dates: start: 20051028, end: 20051104

REACTIONS (2)
  - PYREXIA [None]
  - SEPSIS [None]
